FAERS Safety Report 6227764-9 (Version None)
Quarter: 2009Q2

REPORT INFORMATION
  Report Type: 
  Country: None (occurrence: None)
  Receive Date: 20090610
  Receipt Date: 20090610
  Transmission Date: 20091009
  Serious: Yes (Hospitalization)
  Sender: FDA-Public Use
  Company Number: None

PATIENT
  Sex: Male
  Weight: 87 kg

DRUGS (1)
  1. METOPROLOL TARTRATE [Suspect]
     Dosage: 50MG DAILY PO 20 MG DAILY PO PRIOR TO ADMISSION
     Route: 048

REACTIONS (1)
  - BLOOD PRESSURE DECREASED [None]
